FAERS Safety Report 11255949 (Version 2)
Quarter: 2015Q4

REPORT INFORMATION
  Report Type: Report from Study
  Country: JP (occurrence: JP)
  Receive Date: 20150709
  Receipt Date: 20151014
  Transmission Date: 20160304
  Serious: Yes (Life-Threatening, Hospitalization, Other)
  Sender: FDA-Public Use
  Company Number: PHJP2015JP011317

PATIENT
  Age: 49 Year
  Sex: Male
  Weight: 55 kg

DRUGS (42)
  1. NEORAL [Concomitant]
     Active Substance: CYCLOSPORINE
     Dosage: 60 MG, UNK
     Route: 048
     Dates: start: 20121206, end: 20121216
  2. CERTICAN [Suspect]
     Active Substance: EVEROLIMUS
     Indication: HEART TRANSPLANT
     Dosage: 1.5 MG, UNK
     Route: 048
     Dates: start: 20111001, end: 20111009
  3. PROGRAF [Concomitant]
     Active Substance: TACROLIMUS\TACROLIMUS ANHYDROUS
     Dosage: 15 MG, UNK
     Route: 048
     Dates: start: 20111208, end: 20120513
  4. NEORAL [Concomitant]
     Active Substance: CYCLOSPORINE
     Dosage: 50 MG, UNK
     Route: 048
     Dates: start: 20120916, end: 20120926
  5. NEORAL [Concomitant]
     Active Substance: CYCLOSPORINE
     Dosage: 50 MG, UNK
     Route: 048
     Dates: start: 20121217, end: 20130211
  6. NEORAL [Concomitant]
     Active Substance: CYCLOSPORINE
     Dosage: 50 MG, UNK
     Route: 048
     Dates: start: 20130718
  7. CERTICAN [Suspect]
     Active Substance: EVEROLIMUS
     Dosage: 2.5 MG, QD
     Route: 048
     Dates: start: 20120521, end: 20120606
  8. PROGRAF [Concomitant]
     Active Substance: TACROLIMUS\TACROLIMUS ANHYDROUS
     Dosage: 18 MG, UNK
     Route: 048
     Dates: start: 20111005, end: 20111031
  9. RENIVACE [Concomitant]
     Active Substance: ENALAPRIL
     Indication: HYPERTENSION
     Dosage: 2.5 MG, UNK
     Route: 048
     Dates: start: 20110705, end: 20120209
  10. NEORAL [Concomitant]
     Active Substance: CYCLOSPORINE
     Dosage: 40 MG, UNK
     Route: 048
     Dates: start: 20121112, end: 20121118
  11. NEORAL [Concomitant]
     Active Substance: CYCLOSPORINE
     Dosage: 50 MG, UNK
     Route: 048
     Dates: start: 20130425, end: 20130510
  12. PROGRAF [Concomitant]
     Active Substance: TACROLIMUS\TACROLIMUS ANHYDROUS
     Dosage: 16 MG, UNK
     Route: 048
     Dates: start: 20111001, end: 20111004
  13. SANDIMMUN [Concomitant]
     Active Substance: CYCLOSPORINE
     Dosage: 12 MG, UNK
     Route: 041
     Dates: start: 20120704, end: 20120705
  14. SANDIMMUN [Concomitant]
     Active Substance: CYCLOSPORINE
     Dosage: 6 MG, UNK
     Route: 041
     Dates: start: 20120706, end: 20120805
  15. PROGRAF [Concomitant]
     Active Substance: TACROLIMUS\TACROLIMUS ANHYDROUS
     Dosage: 12 MG, UNK
     Route: 048
     Dates: start: 20120514, end: 20120517
  16. PROGRAF [Concomitant]
     Active Substance: TACROLIMUS\TACROLIMUS ANHYDROUS
     Dosage: 6 MG, UNK
     Route: 048
     Dates: start: 20120518, end: 20120527
  17. CERTICAN [Suspect]
     Active Substance: EVEROLIMUS
     Dosage: 2 MG, QD
     Route: 048
     Dates: start: 20111010, end: 20120405
  18. PREDONINE [Concomitant]
     Active Substance: PREDNISOLONE\PREDNISOLONE ACETATE\PREDNISOLONE SODIUM SUCCINATE
     Dosage: 2.5 MG, UNK
     Route: 048
     Dates: start: 20120521
  19. PROGRAF [Concomitant]
     Active Substance: TACROLIMUS\TACROLIMUS ANHYDROUS
     Indication: HEART TRANSPLANT
     Dosage: 19 MG, UNK
     Route: 048
     Dates: start: 20110830, end: 20110930
  20. SANDIMMUN [Concomitant]
     Active Substance: CYCLOSPORINE
     Indication: HEART TRANSPLANT
     Dosage: 24 MG, UNK
     Route: 041
     Dates: start: 20120703, end: 20120704
  21. MYCOPHENOLATE MOFETIL. [Concomitant]
     Active Substance: MYCOPHENOLATE MOFETIL
     Dosage: 500 MG, UNK
     Route: 048
     Dates: start: 20121203, end: 20121210
  22. NEORAL [Concomitant]
     Active Substance: CYCLOSPORINE
     Indication: HEART TRANSPLANT
     Dosage: 200 MG, UNK
     Route: 048
     Dates: start: 20120907, end: 20120915
  23. NEORAL [Concomitant]
     Active Substance: CYCLOSPORINE
     Dosage: 50 MG, UNK
     Route: 048
     Dates: start: 20121015, end: 20121111
  24. NEORAL [Concomitant]
     Active Substance: CYCLOSPORINE
     Dosage: 80 MG, UNK
     Route: 048
     Dates: start: 20121119, end: 20121205
  25. NEORAL [Concomitant]
     Active Substance: CYCLOSPORINE
     Dosage: 60 MG, UNK
     Route: 048
     Dates: start: 20130212, end: 20130419
  26. CERTICAN [Suspect]
     Active Substance: EVEROLIMUS
     Dosage: 2.75 MG, QD
     Route: 048
     Dates: start: 20120406, end: 20120520
  27. PROGRAF [Concomitant]
     Active Substance: TACROLIMUS\TACROLIMUS ANHYDROUS
     Dosage: 16 MG, UNK
     Route: 048
     Dates: start: 20111101, end: 20111207
  28. SANDIMMUN [Concomitant]
     Active Substance: CYCLOSPORINE
     Dosage: 3 MG, UNK
     Route: 041
     Dates: start: 20120806, end: 20120906
  29. MYCOPHENOLATE MOFETIL. [Concomitant]
     Active Substance: MYCOPHENOLATE MOFETIL
     Indication: HEART TRANSPLANT
     Dosage: 1000 MG, UNK
     Route: 048
     Dates: start: 20121121, end: 20121203
  30. SIMULECT [Concomitant]
     Active Substance: BASILIXIMAB
     Indication: HEART TRANSPLANT
     Dosage: UNK
     Route: 065
     Dates: start: 20120619
  31. NEORAL [Concomitant]
     Active Substance: CYCLOSPORINE
     Dosage: 20 MG, UNK
     Route: 048
     Dates: start: 20130511, end: 20130717
  32. PREDONINE [Concomitant]
     Active Substance: PREDNISOLONE\PREDNISOLONE ACETATE\PREDNISOLONE SODIUM SUCCINATE
     Indication: HEART TRANSPLANT
     Dosage: 5 MG, UNK
     Route: 048
     Dates: start: 20111001, end: 20120520
  33. SANDIMMUN [Concomitant]
     Active Substance: CYCLOSPORINE
     Dosage: 9 MG, UNK
     Route: 041
     Dates: start: 20120705, end: 20120706
  34. MYCOPHENOLATE MOFETIL. [Concomitant]
     Active Substance: MYCOPHENOLATE MOFETIL
     Dosage: 1000 MG, UNK
     Route: 048
     Dates: start: 20130513, end: 20130517
  35. NEORAL [Concomitant]
     Active Substance: CYCLOSPORINE
     Dosage: 40 MG, UNK
     Route: 048
     Dates: start: 20120927, end: 20121014
  36. NEORAL [Concomitant]
     Active Substance: CYCLOSPORINE
     Dosage: 45 MG, UNK
     Route: 048
     Dates: start: 20130420, end: 20130424
  37. CERTICAN [Suspect]
     Active Substance: EVEROLIMUS
     Dosage: 2 MG, QD
     Route: 048
     Dates: start: 20120607, end: 20120619
  38. PROGRAF [Concomitant]
     Active Substance: TACROLIMUS\TACROLIMUS ANHYDROUS
     Dosage: 8 MG, UNK
     Route: 048
     Dates: start: 20120528, end: 20120619
  39. RENIVACE [Concomitant]
     Active Substance: ENALAPRIL
     Dosage: 10 MG, UNK
     Route: 048
     Dates: start: 20120210, end: 20120619
  40. LIPITOR [Concomitant]
     Active Substance: ATORVASTATIN CALCIUM
     Indication: HYPERLIPIDAEMIA
     Dosage: 5 MG, UNK
     Route: 048
     Dates: start: 20110801, end: 20120619
  41. MYCOPHENOLATE MOFETIL. [Concomitant]
     Active Substance: MYCOPHENOLATE MOFETIL
     Dosage: 1500 MG, UNK
     Route: 048
     Dates: start: 20130304, end: 20130325
  42. MYCOPHENOLATE MOFETIL. [Concomitant]
     Active Substance: MYCOPHENOLATE MOFETIL
     Dosage: 2000 MG, UNK
     Route: 048
     Dates: start: 20130326, end: 20130512

REACTIONS (7)
  - Heart transplant rejection [Recovered/Resolved]
  - Post transplant lymphoproliferative disorder [Recovering/Resolving]
  - Heart transplant rejection [Recovered/Resolved]
  - Small intestinal perforation [Unknown]
  - Haemodynamic instability [Unknown]
  - Pyrexia [Unknown]
  - Haematochezia [Unknown]

NARRATIVE: CASE EVENT DATE: 20120507
